FAERS Safety Report 12687082 (Version 1)
Quarter: 2016Q3

REPORT INFORMATION
  Report Type: Report from Study
  Country: DE (occurrence: DE)
  Receive Date: 20160826
  Receipt Date: 20160826
  Transmission Date: 20161109
  Serious: Yes (Other)
  Sender: FDA-Public Use
  Company Number: DE-CIPLA LTD.-2016DE17538

PATIENT

DRUGS (2)
  1. EZOGABINE/RETIGABINE [Suspect]
     Active Substance: EZOGABINE
     Indication: PARTIAL SEIZURES
     Dosage: 50 MG, TID, INITIATION DOSE
     Route: 065
  2. LAMOTRIGINE. [Suspect]
     Active Substance: LAMOTRIGINE
     Indication: PARTIAL SEIZURES
     Dosage: UNK
     Route: 065

REACTIONS (1)
  - Complex partial seizures [Unknown]
